FAERS Safety Report 18005198 (Version 2)
Quarter: 2020Q3

REPORT INFORMATION
  Report Type: Spontaneous
  Country: JP (occurrence: JP)
  Receive Date: 20200710
  Receipt Date: 20200806
  Transmission Date: 20201103
  Serious: Yes (Hospitalization, Other)
  Sender: FDA-Public Use
  Company Number: JP-009507513-2007JPN000614J

PATIENT
  Age: 75 Year
  Sex: Male
  Weight: 41 kg

DRUGS (7)
  1. VITAMIN B12 [Concomitant]
     Active Substance: CYANOCOBALAMIN
     Dosage: 1 GRAM/9WK
     Route: 030
     Dates: start: 20190814
  2. PEMETREXED DISODIUM [Concomitant]
     Active Substance: PEMETREXED DISODIUM
     Indication: NON-SMALL CELL LUNG CANCER
     Dosage: 770 MILLIGRAM, ONCE EVERY THREE TO FOUR WEEKS
     Route: 041
     Dates: start: 20190821, end: 20200623
  3. PANVITAN [Concomitant]
     Active Substance: VITAMINS
     Dosage: 1 GRAM/DAY
     Route: 048
     Dates: start: 20190814
  4. KEYTRUDA [Suspect]
     Active Substance: PEMBROLIZUMAB
     Indication: NON-SMALL CELL LUNG CANCER
     Dosage: 200 MILLIGRAM, ONCE EVERY THREE TO FOUR WEEKS
     Route: 041
     Dates: start: 20190821, end: 20200623
  5. ACETAMINOPHEN. [Concomitant]
     Active Substance: ACETAMINOPHEN
     Indication: BACK PAIN
     Dosage: 24 MILLIGRAM/DAY
     Route: 048
     Dates: start: 20190821
  6. CARBOPLATIN. [Concomitant]
     Active Substance: CARBOPLATIN
     Indication: NON-SMALL CELL LUNG CANCER
     Dosage: 435 MILLIGRAM, ONCE EVERY THREE TO FOUR WEEKS
     Route: 041
     Dates: start: 20190821, end: 20191112
  7. SPIRIVA [Concomitant]
     Active Substance: TIOTROPIUM BROMIDE MONOHYDRATE
     Indication: CHRONIC OBSTRUCTIVE PULMONARY DISEASE
     Dosage: 2 INHALATIONS/DAY
     Dates: start: 20190814

REACTIONS (3)
  - Duodenal ulcer [Unknown]
  - Off label use [Unknown]
  - Duodenal stenosis [Not Recovered/Not Resolved]

NARRATIVE: CASE EVENT DATE: 20200701
